FAERS Safety Report 18676432 (Version 1)
Quarter: 2020Q4

REPORT INFORMATION
  Report Type: Spontaneous
  Country: US (occurrence: US)
  Receive Date: 20201229
  Receipt Date: 20201229
  Transmission Date: 20210114
  Serious: Yes (Death, Hospitalization, Other)
  Sender: FDA-Public Use
  Company Number: None

PATIENT
  Age: 60 Year
  Sex: Male
  Weight: 111.1 kg

DRUGS (5)
  1. DECADRON [Concomitant]
     Active Substance: DEXAMETHASONE
     Dates: start: 20201210, end: 20201226
  2. PIPERCILLIN-TAZOBACTAM [Concomitant]
     Active Substance: PIPERACILLIN SODIUM\TAZOBACTAM SODIUM
     Dates: start: 20201211, end: 20201220
  3. BARICITINIB. [Suspect]
     Active Substance: BARICITINIB
     Indication: COVID-19
     Route: 048
     Dates: start: 20201212, end: 20201215
  4. REMDESIVIR. [Concomitant]
     Active Substance: REMDESIVIR
     Dates: start: 20201211, end: 20201215
  5. BARICITINIB. [Suspect]
     Active Substance: BARICITINIB
     Indication: COVID-19
     Route: 048
     Dates: start: 20201215, end: 20201220

REACTIONS (6)
  - Melaena [None]
  - Respiratory distress [None]
  - Pneumonia pseudomonal [None]
  - Bradycardia [None]
  - Cardiac arrest [None]
  - Sepsis [None]

NARRATIVE: CASE EVENT DATE: 20201226
